FAERS Safety Report 4468067-2 (Version None)
Quarter: 2004Q4

REPORT INFORMATION
  Report Type: 
  Country: None (occurrence: None)
  Receive Date: 20041004
  Receipt Date: 20040922
  Transmission Date: 20050328
  Serious: Yes (Death)
  Sender: FDA-Public Use
  Company Number: 2004060473

PATIENT
  Age: 86 Year
  Sex: Male

DRUGS (4)
  1. CARDURA [Suspect]
     Indication: BENIGN PROSTATIC HYPERPLASIA
     Dosage: 2 MG (2 MG, 1 IN 1 D), ORAL
     Route: 048
     Dates: start: 19960327, end: 20040720
  2. AMIODARONE HCL [Concomitant]
  3. ISOSORBIDE DINITRATE [Concomitant]
  4. ANALGESICS (ANALGESICS) [Concomitant]

REACTIONS (7)
  - ABDOMINAL PAIN UPPER [None]
  - ANOREXIA [None]
  - CARDIAC ARREST [None]
  - CONSTIPATION [None]
  - DIARRHOEA [None]
  - PYREXIA [None]
  - UNEVALUABLE EVENT [None]
